FAERS Safety Report 10279863 (Version 1)
Quarter: 2014Q3

REPORT INFORMATION
  Report Type: Spontaneous
  Country: US (occurrence: None)
  Receive Date: 20140701
  Receipt Date: 20140701
  Transmission Date: 20150326
  Serious: No
  Sender: FDA-Public Use
  Company Number: None

PATIENT
  Age: 77 Year
  Sex: Female
  Weight: 68.04 kg

DRUGS (6)
  1. XARELTO [Suspect]
     Active Substance: RIVAROXABAN
     Indication: ATRIAL FIBRILLATION
     Dosage: STRENGTH 20MG  1 DAILY BY MOUTH
     Route: 048
     Dates: start: 20120812, end: 20140422
  2. VERAPAMIL 360MG [Concomitant]
  3. HYDROCODONE [Concomitant]
     Active Substance: HYDROCODONE
  4. FUROSEMIDE 20MG [Concomitant]
     Active Substance: FUROSEMIDE
  5. VITAMIN C 500MG [Concomitant]
  6. COUMADINE 1MG [Concomitant]

REACTIONS (6)
  - Blister [None]
  - Skin burning sensation [None]
  - Pruritus [None]
  - Skin exfoliation [None]
  - Rash [None]
  - Erythema [None]
